FAERS Safety Report 16538975 (Version 3)
Quarter: 2019Q3

REPORT INFORMATION
  Report Type: Spontaneous
  Country: US (occurrence: US)
  Receive Date: 20190708
  Receipt Date: 20190918
  Transmission Date: 20191004
  Serious: Yes (Disabling, Other)
  Sender: FDA-Public Use
  Company Number: US-SA-2019SA181708

PATIENT
  Age: 61 Year
  Sex: Male
  Weight: 88.48 kg

DRUGS (1)
  1. DUPIXENT [Suspect]
     Active Substance: DUPILUMAB
     Indication: DERMATITIS ATOPIC
     Dosage: 300 MG, QOW
     Route: 058
     Dates: start: 20190501

REACTIONS (7)
  - Dysgraphia [Unknown]
  - Arthralgia [Unknown]
  - Temperature intolerance [Unknown]
  - Lung neoplasm malignant [Unknown]
  - Gait disturbance [Unknown]
  - Joint swelling [Recovering/Resolving]
  - Peripheral swelling [Recovering/Resolving]
